FAERS Safety Report 4421240-1 (Version None)
Quarter: 2004Q3

REPORT INFORMATION
  Report Type: 
  Country: None (occurrence: None)
  Receive Date: 20040708
  Receipt Date: 20040215
  Transmission Date: 20050211
  Serious: No
  Sender: FDA-Public Use
  Company Number: US067302

PATIENT
  Sex: Female

DRUGS (1)
  1. KINERET [Suspect]
     Indication: RHEUMATOID ARTHRITIS
     Dosage: 100 MG, 1 IN 1 DAYS, SC
     Route: 058
     Dates: start: 20000901

REACTIONS (3)
  - ARTHRALGIA [None]
  - DIARRHOEA [None]
  - JOINT SWELLING [None]
